FAERS Safety Report 14992557 (Version 4)
Quarter: 2018Q4

REPORT INFORMATION
  Report Type: Spontaneous
  Country: JP (occurrence: JP)
  Receive Date: 20180609
  Receipt Date: 20181005
  Transmission Date: 20190204
  Serious: Yes (Other)
  Sender: FDA-Public Use
  Company Number: JP-AMGEN-JPNSP2018077694

PATIENT
  Age: 88 Year
  Sex: Male

DRUGS (3)
  1. PRALIA [Suspect]
     Active Substance: DENOSUMAB
     Indication: OSTEOPOROSIS
     Dosage: 60 MG, Q6MO
     Route: 058
     Dates: start: 20180327, end: 20180327
  2. EDIROL [Concomitant]
     Active Substance: ELDECALCITOL
     Indication: OSTEOPOROSIS
     Dosage: 0.75 MUG, QD
     Route: 048
  3. ORENCIA [Concomitant]
     Active Substance: ABATACEPT
     Indication: RHEUMATIC DISORDER
     Dosage: 125 MG, Q2WK
     Route: 058

REACTIONS (1)
  - Osteonecrosis of external auditory canal [Recovering/Resolving]

NARRATIVE: CASE EVENT DATE: 20180522
